FAERS Safety Report 14583322 (Version 1)
Quarter: 2018Q1

REPORT INFORMATION
  Report Type: Spontaneous
  Country: US (occurrence: US)
  Receive Date: 20180228
  Receipt Date: 20180228
  Transmission Date: 20180509
  Serious: Yes (Other)
  Sender: FDA-Public Use
  Company Number: None

PATIENT
  Age: 55 Year
  Sex: Female
  Weight: 77.11 kg

DRUGS (2)
  1. MULTI VITAMIN [Concomitant]
     Active Substance: VITAMINS
  2. KYBELLA [Suspect]
     Active Substance: DEOXYCHOLIC ACID
     Indication: BODY FAT DISORDER
     Dosage: INJECTED SUBMENTALLY
     Dates: start: 20180112, end: 20180112

REACTIONS (26)
  - Injection site swelling [None]
  - Tongue dry [None]
  - Fatigue [None]
  - Tinnitus [None]
  - Chills [None]
  - Muscle twitching [None]
  - Dry mouth [None]
  - Neck pain [None]
  - Dysphagia [None]
  - Dizziness [None]
  - Dysgeusia [None]
  - Injection site pain [None]
  - Gait inability [None]
  - Injection site hypoaesthesia [None]
  - Cough [None]
  - Musculoskeletal stiffness [None]
  - Headache [None]
  - Dysstasia [None]
  - Body fat disorder [None]
  - Movement disorder [None]
  - Vertigo [None]
  - Chapped lips [None]
  - Asthenia [None]
  - Palpitations [None]
  - Nausea [None]
  - Facial paralysis [None]

NARRATIVE: CASE EVENT DATE: 20180112
